FAERS Safety Report 4646114-2 (Version None)
Quarter: 2005Q2

REPORT INFORMATION
  Report Type: 
  Country: None (occurrence: None)
  Receive Date: 20050427
  Receipt Date: 20040514
  Transmission Date: 20051028
  Serious: No
  Sender: FDA-Public Use
  Company Number: US-GLAXOSMITHKLINE-A0510921A

PATIENT
  Age: 36 Year
  Sex: Female

DRUGS (5)
  1. ZOFRAN [Suspect]
     Indication: PROPHYLAXIS OF NAUSEA AND VOMITING
     Dosage: 4MG VARIABLE DOSE
     Route: 048
     Dates: start: 20040505
  2. PROMETHAZINE [Concomitant]
  3. NEURONTIN [Concomitant]
  4. LAMICTAL [Concomitant]
  5. RISPERDAL [Concomitant]

REACTIONS (1)
  - DRUG SCREEN POSITIVE [None]
